FAERS Safety Report 15360804 (Version 1)
Quarter: 2018Q3

REPORT INFORMATION
  Report Type: Spontaneous
  Country: RS (occurrence: RS)
  Receive Date: 20180907
  Receipt Date: 20180907
  Transmission Date: 20181010
  Serious: Yes (Hospitalization, Other)
  Sender: FDA-Public Use
  Company Number: RS-MYLANLABS-2018M1064864

PATIENT
  Age: 42 Year
  Sex: Female

DRUGS (6)
  1. PREDNISONE. [Suspect]
     Active Substance: PREDNISONE
     Indication: LYMPHOCYTIC HYPOPHYSITIS
     Dosage: 20 MG
     Route: 065
  2. AZATHIOPRINE. [Suspect]
     Active Substance: AZATHIOPRINE
     Indication: LYMPHOCYTIC HYPOPHYSITIS
     Route: 065
  3. METHYLPREDNISOLONE. [Concomitant]
     Active Substance: METHYLPREDNISOLONE
     Indication: LYMPHOCYTIC HYPOPHYSITIS
     Route: 042
  4. PREDNISONE. [Suspect]
     Active Substance: PREDNISONE
     Dosage: WITH GRADUAL TAPERING OF DOSE
     Route: 048
  5. PREDNISONE. [Suspect]
     Active Substance: PREDNISONE
     Route: 048
  6. HYDROCORTISONE. [Concomitant]
     Active Substance: HYDROCORTISONE
     Indication: LYMPHOCYTIC HYPOPHYSITIS
     Route: 065

REACTIONS (2)
  - Cushing^s syndrome [Recovering/Resolving]
  - Drug ineffective [Unknown]
